FAERS Safety Report 19895484 (Version 2)
Quarter: 2021Q3

REPORT INFORMATION
  Report Type: Report from Study
  Country: TR (occurrence: TR)
  Receive Date: 20210929
  Receipt Date: 20210929
  Transmission Date: 20211014
  Serious: Yes (Death, Life-Threatening, Hospitalization)
  Sender: FDA-Public Use
  Company Number: TR-CELGENEUS-TUR-20210906985

PATIENT
  Age: 60 Year
  Sex: Female

DRUGS (13)
  1. LANTUS [Concomitant]
     Active Substance: INSULIN GLARGINE
     Indication: HYPERGLYCAEMIA
     Dosage: 8 IU (INTERNATIONAL UNIT)
     Route: 058
     Dates: start: 20190919
  2. FLACYL [Concomitant]
     Indication: SOFT TISSUE INFECTION
     Dosage: 1500 MILLIGRAM
     Route: 048
     Dates: start: 20191028
  3. GLUKOFEN [Concomitant]
     Active Substance: METFORMIN HYDROCHLORIDE
     Indication: HYPERGLYCAEMIA
     Dosage: 2550 MILLIGRAM
     Route: 048
     Dates: start: 20190920
  4. JNJ?74494550 [Suspect]
     Active Substance: CUSATUZUMAB
     Indication: ACUTE MYELOID LEUKAEMIA
     Route: 041
     Dates: start: 20190919
  5. NOXAFIL [Concomitant]
     Active Substance: POSACONAZOLE
     Indication: STOMATITIS
     Dosage: 300 MILLIGRAM
     Route: 048
     Dates: start: 20190911
  6. RIVANOL [Concomitant]
     Active Substance: ETHACRIDINE LACTATE
     Indication: SOFT TISSUE INFECTION
     Dosage: 2 GRAM
     Route: 050
     Dates: start: 20191017
  7. PULCET [Concomitant]
     Active Substance: PANTOPRAZOLE SODIUM
     Indication: GASTROINTESTINAL DISORDER PROPHYLAXIS
     Dosage: 40 MILLIGRAM
     Route: 048
     Dates: start: 20190919
  8. CIPRO [Concomitant]
     Active Substance: CIPROFLOXACIN HYDROCHLORIDE
     Indication: SOFT TISSUE INFECTION
     Dosage: 1000 MILLIGRAM
     Route: 048
     Dates: start: 20191028
  9. GRANISETRON [Concomitant]
     Active Substance: GRANISETRON
     Indication: NAUSEA
     Dosage: 1 MILLIGRAM
     Route: 048
     Dates: start: 20191017
  10. AZACITIDINE INJECTABLE [Suspect]
     Active Substance: AZACITIDINE
     Indication: ACUTE MYELOID LEUKAEMIA
     Route: 058
     Dates: start: 20190917
  11. PERINDOPRIL [Concomitant]
     Active Substance: PERINDOPRIL
     Indication: HYPERTENSION
     Dosage: 10 MILLIGRAM
     Route: 048
     Dates: start: 1999
  12. BACTROBAN [Concomitant]
     Active Substance: MUPIROCIN\MUPIROCIN CALCIUM
     Indication: SOFT TISSUE INFECTION
     Route: 061
     Dates: start: 20191017
  13. NYSTATIN. [Concomitant]
     Active Substance: NYSTATIN
     Indication: STOMATITIS
     Dosage: 400 OTHER
     Route: 048
     Dates: start: 20190911

REACTIONS (3)
  - Sepsis [Not Recovered/Not Resolved]
  - Septic shock [Fatal]
  - Soft tissue infection [Not Recovered/Not Resolved]

NARRATIVE: CASE EVENT DATE: 20191109
